FAERS Safety Report 12072602 (Version 2)
Quarter: 2016Q2

REPORT INFORMATION
  Report Type: Report from Study
  Country: NL (occurrence: NL)
  Receive Date: 20160212
  Receipt Date: 20160531
  Transmission Date: 20160815
  Serious: Yes (Hospitalization, Other)
  Sender: FDA-Public Use
  Company Number: NL-AMGEN-NLDSL2016015993

PATIENT
  Age: 54 Year
  Sex: Female

DRUGS (13)
  1. PRAMIPEXOL [Concomitant]
     Active Substance: PRAMIPEXOLE
     Dosage: 1 MG, QD
     Dates: start: 20150620, end: 20150727
  2. ESOMEPRAZOL                        /01479301/ [Concomitant]
     Active Substance: ESOMEPRAZOLE
     Dosage: 40 MG, QD
     Dates: start: 20150620
  3. HYDROCHLOORTHIAZIDE [Concomitant]
     Active Substance: HYDROCHLOROTHIAZIDE
     Dosage: 12.5 MG, QD
     Dates: start: 20150620, end: 20150727
  4. SENNOSIDE A+B [Concomitant]
     Active Substance: SENNOSIDES A AND B
     Dosage: UNK
     Dates: start: 20150807
  5. PREGABALINE [Concomitant]
     Active Substance: PREGABALIN
     Dosage: 150 MG, BID
     Dates: start: 20150807
  6. MACROGOL [Concomitant]
     Active Substance: POLYETHYLENE GLYCOLS
     Dosage: UNK UNK, BID
     Dates: start: 20150807
  7. DALTEPARIN [Concomitant]
     Active Substance: DALTEPARIN
     Dosage: 12.5IE/ML, QD
     Dates: start: 20160205
  8. AMOXICILLINE/CLAVULAANZUUR [Concomitant]
     Active Substance: AMOXICILLIN\CLAVULANATE POTASSIUM
     Dosage: 1000/200MG, TID
     Dates: start: 20160205
  9. XGEVA [Suspect]
     Active Substance: DENOSUMAB
     Indication: METASTASES TO BONE
     Dosage: 120 MG, Q4WK
     Route: 058
     Dates: start: 20150708
  10. CITALOPRAM [Concomitant]
     Active Substance: CITALOPRAM HYDROBROMIDE
     Dosage: 20 MG, QD
     Dates: start: 20150620
  11. NAPROXEN. [Concomitant]
     Active Substance: NAPROXEN
     Dosage: 500 MG, BID
     Dates: start: 20150807
  12. CALCIUM CARBONATE W/COLECALCIFEROL [Concomitant]
     Active Substance: CALCIUM CARBONATE\CHOLECALCIFEROL
     Dosage: 1.25G/440IE QD
     Dates: start: 20151027
  13. OXYCODON [Concomitant]
     Active Substance: OXYCODONE
     Dosage: 10 MG, UNK
     Dates: start: 20150807, end: 20160205

REACTIONS (6)
  - Pneumonia [Unknown]
  - Lumbar vertebral fracture [Unknown]
  - Somnolence [Unknown]
  - Pyrexia [Unknown]
  - Renal impairment [Recovered/Resolved]
  - Gait disturbance [Unknown]

NARRATIVE: CASE EVENT DATE: 20150725
